FAERS Safety Report 10595401 (Version 1)
Quarter: 2014Q4

REPORT INFORMATION
  Report Type: Spontaneous
  Country: US (occurrence: None)
  Receive Date: 20141119
  Receipt Date: 20141119
  Transmission Date: 20150529
  Serious: Yes (Other)
  Sender: FDA-Public Use
  Company Number: None

PATIENT
  Age: 43 Year
  Sex: Female
  Weight: 63.5 kg

DRUGS (1)
  1. SYNTHROID [Suspect]
     Active Substance: LEVOTHYROXINE SODIUM
     Indication: HYPOTHYROIDISM
     Dosage: TAKEN BY MOUTH

REACTIONS (43)
  - Swelling face [None]
  - Mood altered [None]
  - Chest pain [None]
  - Fatigue [None]
  - Heart rate irregular [None]
  - Rash [None]
  - Lip swelling [None]
  - Pharyngeal oedema [None]
  - Dizziness [None]
  - Crying [None]
  - Fear [None]
  - Nervousness [None]
  - Weight decreased [None]
  - Sinusitis [None]
  - Diarrhoea [None]
  - Emotional disorder [None]
  - Asthenia [None]
  - Weight increased [None]
  - Dyspnoea [None]
  - Back pain [None]
  - Vision blurred [None]
  - Feeling hot [None]
  - Palpitations [None]
  - Pain in jaw [None]
  - Pruritus [None]
  - Swollen tongue [None]
  - Restlessness [None]
  - Menstrual disorder [None]
  - Pain in extremity [None]
  - Neck pain [None]
  - Eye swelling [None]
  - Confusional state [None]
  - Erythema [None]
  - Urticaria [None]
  - Hyperhidrosis [None]
  - Diplopia [None]
  - Coordination abnormal [None]
  - Chest discomfort [None]
  - Heart rate decreased [None]
  - Heart rate increased [None]
  - Temperature intolerance [None]
  - Irritability [None]
  - Appetite disorder [None]
